FAERS Safety Report 9365139 (Version 1)
Quarter: 2013Q2

REPORT INFORMATION
  Report Type: Report from Study
  Country: ES (occurrence: ES)
  Receive Date: 20130624
  Receipt Date: 20130624
  Transmission Date: 20140414
  Serious: Yes (Hospitalization)
  Sender: FDA-Public Use
  Company Number: PHHO2013ES008076

PATIENT
  Age: 75 Year
  Sex: Male
  Weight: 93 kg

DRUGS (8)
  1. FUROSEMIDE [Suspect]
     Indication: CARDIAC FAILURE
     Dosage: 80 MG, BID
     Route: 048
     Dates: start: 20101028
  2. FUROSEMIDE [Suspect]
     Dosage: 40 MG, QD
     Route: 048
     Dates: start: 20130420
  3. IRBESARTAN [Suspect]
     Indication: CARDIAC FAILURE
     Dosage: 150 MG, QD
     Route: 048
     Dates: start: 201302, end: 20130420
  4. LCZ696 [Suspect]
     Indication: CARDIAC FAILURE CHRONIC
     Dosage: DOUBLE BLIND
     Route: 048
     Dates: start: 20111228, end: 20120905
  5. CARVEDILOL [Concomitant]
     Indication: CARDIAC FAILURE
     Dosage: 25 MG, BID
     Route: 048
     Dates: start: 20111107
  6. DIGOXIN [Concomitant]
     Indication: ATRIAL FIBRILLATION
     Dosage: 0.25 MG, QD
     Route: 048
     Dates: start: 20101028
  7. EPLERENONE [Concomitant]
     Indication: CARDIAC FAILURE
     Dosage: 25 MG, BID
     Route: 048
     Dates: start: 20110921
  8. SIMVASTATINE [Concomitant]
     Indication: DYSLIPIDAEMIA
     Dosage: 10 MG, QD
     Route: 048

REACTIONS (1)
  - Syncope [Recovered/Resolved]
